FAERS Safety Report 7945487-2 (Version None)
Quarter: 2011Q4

REPORT INFORMATION
  Report Type: 
  Country: None (occurrence: None)
  Receive Date: 20111129
  Receipt Date: 20111122
  Transmission Date: 20120403
  Serious: Yes (Hospitalization, Other)
  Sender: FDA-Public Use
  Company Number: US-BAYER-2011-096384

PATIENT
  Age: 73 Year
  Sex: Male

DRUGS (8)
  1. NEXAVAR [Suspect]
     Indication: HEPATIC NEOPLASM MALIGNANT
     Dosage: 400 MG, BID
     Dates: start: 20110420, end: 20111001
  2. NAPROXEN [Concomitant]
     Dosage: UNK
  3. OXYCODONE HCL [Concomitant]
     Dosage: 5 G
  4. CIALIS [Concomitant]
     Dosage: 20 G
  5. NEXAVAR [Suspect]
     Dosage: 400 MG, BID
     Dates: start: 20110420, end: 20111115
  6. VIGAMOX [Concomitant]
  7. NEVANAC [Concomitant]
  8. PREDNISOLONE [Concomitant]

REACTIONS (5)
  - OEDEMA PERIPHERAL [None]
  - HEPATIC NEOPLASM MALIGNANT [None]
  - PAIN [None]
  - ERYTHEMA [None]
  - LYMPHADENOPATHY [None]
